FAERS Safety Report 25225521 (Version 2)
Quarter: 2025Q2

REPORT INFORMATION
  Report Type: Report from Study
  Country: FR (occurrence: None)
  Receive Date: 20250422
  Receipt Date: 20250605
  Transmission Date: 20250717
  Serious: Yes (Other)
  Sender: INCYTE
  Company Number: FR-002147023-NVSC2025FR062841

PATIENT

DRUGS (2)
  1. RUXOLITINIB [Suspect]
     Active Substance: RUXOLITINIB
     Indication: Acute graft versus host disease
     Dosage: 5 MG, BID, TABLET
  2. RUXOLITINIB [Suspect]
     Active Substance: RUXOLITINIB
     Dosage: 2.5 MG, BID, ORAL SOLUTION (IN THE  MORNING AND IN THE EVENING))

REACTIONS (1)
  - Thrombocytopenia [Unknown]
